FAERS Safety Report 23641436 (Version 1)
Quarter: 2024Q1

REPORT INFORMATION
  Report Type: Other
  Country: CN (occurrence: None)
  Receive Date: 20240318
  Receipt Date: 20240318
  Transmission Date: 20240409
  Serious: Yes (Death, Hospitalization, Other)
  Sender: FDA-Public Use
  Company Number: CN-Square-000212

PATIENT
  Age: 32 Year
  Sex: Female

DRUGS (14)
  1. ACYCLOVIR [Suspect]
     Active Substance: ACYCLOVIR
     Indication: Coxsackie viral infection
  2. IMMUNE GLOBULIN NOS [Suspect]
     Active Substance: IMMUNE GLOBULIN NOS
     Indication: Cardiogenic shock
  3. METHYLPREDNISOLONE [Suspect]
     Active Substance: METHYLPREDNISOLONE
     Indication: Cardiogenic shock
  4. TRIMETAZIDINE [Suspect]
     Active Substance: TRIMETAZIDINE
     Indication: Nutritional supplementation
  5. LEVOSIMENDAN [Suspect]
     Active Substance: LEVOSIMENDAN
     Indication: Product used for unknown indication
  6. SILDENAFIL [Suspect]
     Active Substance: SILDENAFIL
     Indication: Product used for unknown indication
  7. MOXIFLOXACIN [Suspect]
     Active Substance: MOXIFLOXACIN
     Indication: Infection
  8. ENTECAVIR [Suspect]
     Active Substance: ENTECAVIR
     Indication: Infection
  9. ADEFOVIR [Suspect]
     Active Substance: ADEFOVIR
     Indication: Infection
  10. GLUTATHIONE [Suspect]
     Active Substance: GLUTATHIONE
     Indication: Liver disorder
  11. PANTOPRAZOLE [Suspect]
     Active Substance: PANTOPRAZOLE
     Indication: Product used for unknown indication
  12. HEPARIN [Suspect]
     Active Substance: HEPARIN SODIUM
     Indication: Product used for unknown indication
  13. HYDROXYLAMINE [Suspect]
     Active Substance: HYDROXYLAMINE
     Indication: Product used for unknown indication
  14. AMOXICILLIN [Concomitant]
     Active Substance: AMOXICILLIN
     Indication: Product used for unknown indication

REACTIONS (2)
  - Coxsackie myocarditis [Fatal]
  - Condition aggravated [Fatal]
